FAERS Safety Report 7983628-1 (Version None)
Quarter: 2011Q4

REPORT INFORMATION
  Report Type: 
  Country: None (occurrence: None)
  Receive Date: 20111215
  Receipt Date: 20111202
  Transmission Date: 20120403
  Serious: Yes (Other)
  Sender: FDA-Public Use
  Company Number: PHHY2011AU107941

PATIENT
  Age: 32 Week
  Sex: Male
  Weight: 2.5 kg

DRUGS (3)
  1. OCTREOTIDE ACETATE [Suspect]
     Indication: CHYLOTHORAX
     Dosage: 1 UG/KG/HR
  2. OCTREOTIDE ACETATE [Suspect]
     Dosage: 10 UG/KG / HR
  3. OCTREOTIDE ACETATE [Suspect]
     Dosage: 2 UG/KG/HR

REACTIONS (4)
  - RENAL FAILURE [None]
  - MEDICATION ERROR [None]
  - CEREBRAL ATROPHY [None]
  - CARDIAC FAILURE [None]
